FAERS Safety Report 7047340-8 (Version None)
Quarter: 2010Q4

REPORT INFORMATION
  Report Type: 
  Country: None (occurrence: None)
  Receive Date: 20101015
  Receipt Date: 20101005
  Transmission Date: 20110411
  Serious: Yes (Other)
  Sender: FDA-Public Use
  Company Number: PHHY2010US57872

PATIENT
  Age: 61 Year
  Sex: Female

DRUGS (1)
  1. ZOMETA [Suspect]
     Indication: BREAST CANCER METASTATIC
     Dosage: 4 MG, UNK
     Route: 042
     Dates: start: 20080301, end: 20100301

REACTIONS (1)
  - OSTEONECROSIS OF JAW [None]
